FAERS Safety Report 12785210 (Version 1)
Quarter: 2016Q3

REPORT INFORMATION
  Report Type: Spontaneous
  Country: US (occurrence: US)
  Receive Date: 20160927
  Receipt Date: 20160927
  Transmission Date: 20161109
  Serious: No
  Sender: FDA-Public Use
  Company Number: US-BAYER-2016-185100

PATIENT
  Age: 57 Year
  Sex: Female
  Weight: 64.4 kg

DRUGS (3)
  1. MIRALAX [Suspect]
     Active Substance: POLYETHYLENE GLYCOL 3350
     Indication: GASTROINTESTINAL TRACT IRRITATION
     Dosage: DAILY DOSE 2 DF
  2. METHYLCELLULOSE [Concomitant]
     Active Substance: METHYLCELLULOSES
  3. MIRALAX [Suspect]
     Active Substance: POLYETHYLENE GLYCOL 3350
     Indication: GASTROINTESTINAL TRACT IRRITATION
     Dosage: 1 DF, QD
     Route: 048

REACTIONS (1)
  - Product use issue [Unknown]
